FAERS Safety Report 9934190 (Version 1)
Quarter: 2014Q1

REPORT INFORMATION
  Report Type: Spontaneous
  Country: US (occurrence: US)
  Receive Date: 20140228
  Receipt Date: 20140228
  Transmission Date: 20141002
  Serious: No
  Sender: FDA-Public Use
  Company Number: US-JNJCP-30000201421

PATIENT
  Sex: Female

DRUGS (1)
  1. NEUTROGENA PRODUCTS [Suspect]
     Indication: PROPHYLAXIS
     Route: 061

REACTIONS (2)
  - Drug ineffective [Unknown]
  - Application site irritation [Recovered/Resolved]
